FAERS Safety Report 9464630 (Version 3)
Quarter: 2013Q4

REPORT INFORMATION
  Report Type: Spontaneous
  Country: US (occurrence: US)
  Receive Date: 20130819
  Receipt Date: 20131028
  Transmission Date: 20140711
  Serious: Yes (Other)
  Sender: FDA-Public Use
  Company Number: US-PFIZER INC-2013238036

PATIENT
  Sex: Female

DRUGS (2)
  1. NEURONTIN [Suspect]
     Indication: PAIN
     Dosage: UNK
  2. CYMBALTA [Suspect]
     Indication: ANXIETY
     Dosage: UNK

REACTIONS (7)
  - Abasia [Unknown]
  - Drug intolerance [Unknown]
  - Hallucination, visual [Unknown]
  - Crying [Unknown]
  - Anger [Unknown]
  - Fatigue [Unknown]
  - Depression [Unknown]
